FAERS Safety Report 21065545 (Version 1)
Quarter: 2022Q3

REPORT INFORMATION
  Report Type: Report from Study
  Country: CN (occurrence: CN)
  Receive Date: 20220711
  Receipt Date: 20220711
  Transmission Date: 20221027
  Serious: Yes (Other)
  Sender: FDA-Public Use
  Company Number: CN-BAXTER-2020BAX025646

PATIENT
  Age: 62 Year
  Sex: Female
  Weight: 68 kg

DRUGS (14)
  1. AMINO ACIDS\DEXTROSE\ELECTROLYTES NOS\SOYBEAN OIL [Suspect]
     Active Substance: AMINO ACIDS\DEXTROSE\ELECTROLYTES NOS\SOYBEAN OIL
     Indication: Product used for unknown indication
     Dosage: 1500 ML,QD, INFUSION RATE:2.73 ML/KG/H
     Route: 065
     Dates: start: 20201124, end: 20201124
  2. AMINO ACIDS\DEXTROSE\ELECTROLYTES NOS\SOYBEAN OIL [Suspect]
     Active Substance: AMINO ACIDS\DEXTROSE\ELECTROLYTES NOS\SOYBEAN OIL
     Dosage: 1500 ML,QD, INFUSION RATE: 5.51ML/KG/H
     Route: 065
     Dates: start: 20201125, end: 20201125
  3. POTASSIUM CHLORIDE [Concomitant]
     Active Substance: POTASSIUM CHLORIDE
     Indication: Rectal cancer
     Dosage: 2.7 G, QD, ROUTE: INTRAVENOUS (PERIPHERAL VEIN/CENTRAL VEIN)
     Route: 042
     Dates: start: 20201124, end: 20201201
  4. SODIUM CHLORIDE [Concomitant]
     Active Substance: SODIUM CHLORIDE
     Indication: Rectal cancer
     Dosage: 3 G, QD, ROUTE: INTRAVENOUS (PERIPHERAL VEIN/CENTRAL VEIN) CONCENTRATED SODIUM CHLORIDE
     Route: 042
     Dates: start: 20201124, end: 20201201
  5. TRACE ELEMENTS NOS [Concomitant]
     Indication: Rectal cancer
     Dosage: 40 ML, QD, ROUTE: INTRAVENOUS (PERIPHERAL VEIN/CENTRAL VEIN) CONCENTRATE OF TRACE ELEMENTS SOLUTION
     Route: 042
     Dates: start: 20201124, end: 20201201
  6. UNSPECIFIED INGREDIENT [Concomitant]
     Active Substance: UNSPECIFIED INGREDIENT
     Indication: Drug therapy
     Dosage: 40 ML
     Route: 065
     Dates: start: 20201124, end: 20201124
  7. UNSPECIFIED INGREDIENT [Concomitant]
     Active Substance: UNSPECIFIED INGREDIENT
     Dosage: 40 ML
     Route: 065
     Dates: start: 20201125, end: 20201125
  8. 12 Vitamins [Concomitant]
     Indication: Rectal cancer
     Dosage: 5 ML, QD, ROUTE: INTRAVENOUS (PERIPHERAL VEIN/CENTRAL VEIN)
     Route: 042
     Dates: start: 20201124, end: 20201201
  9. ELECTROLYTES NOS [Concomitant]
     Active Substance: ELECTROLYTES NOS
     Indication: Drug therapy
     Dosage: 2.7 G
     Route: 065
     Dates: start: 20201124, end: 20201124
  10. ELECTROLYTES NOS [Concomitant]
     Active Substance: ELECTROLYTES NOS
     Dosage: 3 G
     Route: 065
     Dates: start: 20201124, end: 20201124
  11. ELECTROLYTES NOS [Concomitant]
     Active Substance: ELECTROLYTES NOS
     Dosage: 2.7 G
     Route: 065
     Dates: start: 20201125, end: 20201125
  12. ELECTROLYTES NOS [Concomitant]
     Active Substance: ELECTROLYTES NOS
     Dosage: 3 G
     Route: 065
     Dates: start: 20201125, end: 20201125
  13. VITAMINS [Concomitant]
     Active Substance: VITAMINS
     Indication: Drug therapy
     Dosage: 5 ML
     Route: 065
     Dates: start: 20201124, end: 20201124
  14. VITAMINS [Concomitant]
     Active Substance: VITAMINS
     Dosage: 5 ML
     Route: 065
     Dates: start: 20201125, end: 20201125

REACTIONS (1)
  - Arrhythmia [Recovered/Resolved]

NARRATIVE: CASE EVENT DATE: 20201125
